FAERS Safety Report 6045722-4 (Version None)
Quarter: 2009Q1

REPORT INFORMATION
  Report Type: 
  Country: None (occurrence: None)
  Receive Date: 20090121
  Receipt Date: 20090113
  Transmission Date: 20090719
  Serious: Yes (Hospitalization, Congenital Anomaly, Other)
  Sender: FDA-Public Use
  Company Number: US-ASTRAZENECA-2008UW24046

PATIENT

DRUGS (2)
  1. ENTOCORT EC [Suspect]
     Indication: CROHN'S DISEASE
     Dosage: 9 MG
     Route: 048
  2. ENTOCORT EC [Suspect]
     Indication: ENTEROCOLITIS
     Dosage: 9 MG
     Route: 048

REACTIONS (1)
  - CONVULSION [None]
